FAERS Safety Report 6835707-X (Version None)
Quarter: 2010Q3

REPORT INFORMATION
  Report Type: 
  Country: None (occurrence: None)
  Receive Date: 20100712
  Receipt Date: 20100712
  Transmission Date: 20110219
  Serious: Yes (Other)
  Sender: FDA-Public Use
  Company Number: None

PATIENT
  Age: 63 Year
  Sex: Male
  Weight: 81.6475 kg

DRUGS (1)
  1. ZOLPIDEM TARTRATE [Suspect]
     Dosage: ONE TABLET AT BEDTIME PO
     Route: 048
     Dates: start: 20100622, end: 20100701

REACTIONS (10)
  - AMNESIA [None]
  - CONTUSION [None]
  - FACE INJURY [None]
  - FACIAL PAIN [None]
  - FALL [None]
  - GAIT DISTURBANCE [None]
  - HAEMATOMA [None]
  - LOSS OF CONSCIOUSNESS [None]
  - MIDDLE INSOMNIA [None]
  - SWELLING [None]
